FAERS Safety Report 18447893 (Version 1)
Quarter: 2020Q4

REPORT INFORMATION
  Report Type: Spontaneous
  Country: US (occurrence: US)
  Receive Date: 20201030
  Receipt Date: 20201030
  Transmission Date: 20210114
  Serious: No
  Sender: FDA-Public Use
  Company Number: US-UPSHER-SMITH LABORATORIES, LLC-2020USL00298

PATIENT
  Age: 81 Year
  Sex: Male
  Weight: 99.77 kg

DRUGS (4)
  1. JANTOVEN [Suspect]
     Active Substance: WARFARIN SODIUM
     Indication: ATRIAL FIBRILLATION
     Dosage: 5 MG, 5X/WEEK (MONDAY-FRIDAY)
     Dates: start: 20200306
  2. AMLODIPINE [Suspect]
     Active Substance: AMLODIPINE BESYLATE
     Dosage: 5 MG, 3X/DAY (TWICE DAILY AND AT NIGHT)
  3. JANTOVEN [Suspect]
     Active Substance: WARFARIN SODIUM
     Dosage: 2.5 MG, 2X/WEEK (SATURDAY + SUNDAY)
     Dates: start: 20200307
  4. METOPROLOL (DR. REDDYS) [Suspect]
     Active Substance: METOPROLOL
     Indication: ATRIAL FIBRILLATION

REACTIONS (2)
  - Hypertension [Not Recovered/Not Resolved]
  - Drug interaction [Not Recovered/Not Resolved]

NARRATIVE: CASE EVENT DATE: 202003
